FAERS Safety Report 14216236 (Version 1)
Quarter: 2017Q4

REPORT INFORMATION
  Report Type: Spontaneous
  Country: US (occurrence: US)
  Receive Date: 20171122
  Receipt Date: 20171122
  Transmission Date: 20180321
  Serious: Yes (Hospitalization)
  Sender: FDA-Public Use
  Company Number: US-JNJFOC-20171118762

PATIENT
  Age: 69 Year
  Sex: Female
  Weight: 46.27 kg

DRUGS (4)
  1. LASIX [Concomitant]
     Active Substance: FUROSEMIDE
     Indication: PRODUCT USED FOR UNKNOWN INDICATION
     Route: 048
  2. LIALDA [Concomitant]
     Active Substance: MESALAMINE
     Indication: CROHN^S DISEASE
     Route: 048
     Dates: end: 201710
  3. BICARBONATE [Concomitant]
     Active Substance: BICARBONATE ION
     Indication: PRODUCT USED FOR UNKNOWN INDICATION
     Route: 048
  4. DARZALEX [Suspect]
     Active Substance: DARATUMUMAB
     Indication: PLASMA CELL MYELOMA
     Route: 042
     Dates: start: 20171018, end: 20171114

REACTIONS (10)
  - Electrocardiogram abnormal [Unknown]
  - Vomiting [Unknown]
  - Back pain [Unknown]
  - Urinary retention [Unknown]
  - Nausea [Unknown]
  - Diarrhoea [Unknown]
  - pH urine abnormal [Unknown]
  - Peripheral coldness [Unknown]
  - Infection [Unknown]
  - Infusion related reaction [Unknown]

NARRATIVE: CASE EVENT DATE: 20171018
